FAERS Safety Report 9835597 (Version 1)
Quarter: 2014Q1

REPORT INFORMATION
  Report Type: Spontaneous
  Country: US (occurrence: US)
  Receive Date: 20140122
  Receipt Date: 20140122
  Transmission Date: 20141002
  Serious: Yes (Hospitalization)
  Sender: FDA-Public Use
  Company Number: US-PFIZER INC-2014020586

PATIENT
  Age: 56 Year
  Sex: Female
  Weight: 77.1 kg

DRUGS (3)
  1. LYRICA [Suspect]
     Indication: DIABETIC NEUROPATHY
     Dosage: UNK,2X/DAY
     Dates: start: 2013, end: 201312
  2. MORPHINE [Concomitant]
     Indication: BACK DISORDER
     Dosage: UNK, EVERY 8 HRS
  3. MORPHINE [Concomitant]
     Indication: INTERVERTEBRAL DISC DISORDER

REACTIONS (2)
  - Limb injury [Unknown]
  - Localised infection [Unknown]
